FAERS Safety Report 4519166-8 (Version None)
Quarter: 2004Q4

REPORT INFORMATION
  Report Type: 
  Country: None (occurrence: None)
  Receive Date: 20041201
  Receipt Date: 20041122
  Transmission Date: 20050328
  Serious: Yes (Hospitalization)
  Sender: FDA-Public Use
  Company Number: 6011687F

PATIENT
  Sex: Male

DRUGS (1)
  1. NIASPAN [Suspect]
     Dosage: 1000 MG QD PO
     Route: 048

REACTIONS (4)
  - ABNORMAL SENSATION IN EYE [None]
  - BLINDNESS TRANSIENT [None]
  - EYE PAIN [None]
  - FLUSHING [None]
